FAERS Safety Report 6849502-9 (Version None)
Quarter: 2010Q3

REPORT INFORMATION
  Report Type: 
  Country: None (occurrence: None)
  Receive Date: 20100716
  Receipt Date: 20071017
  Transmission Date: 20110219
  Serious: Yes (Other)
  Sender: FDA-Public Use
  Company Number: US-PFIZER INC-2007082512

PATIENT
  Sex: Female
  Weight: 100 kg

DRUGS (3)
  1. CHANTIX [Suspect]
     Indication: SMOKING CESSATION THERAPY
     Dates: start: 20070914, end: 20070916
  2. ALL OTHER THERAPEUTIC PRODUCTS [Concomitant]
  3. LIPITOR [Concomitant]

REACTIONS (4)
  - ABNORMAL DREAMS [None]
  - AGITATION [None]
  - HALLUCINATION [None]
  - HYPERTENSION [None]
